FAERS Safety Report 14614257 (Version 10)
Quarter: 2019Q2

REPORT INFORMATION
  Report Type: Spontaneous
  Country: US (occurrence: US)
  Receive Date: 20180308
  Receipt Date: 20190522
  Transmission Date: 20190711
  Serious: Yes (Other)
  Sender: FDA-Public Use
  Company Number: US-BRISTOL-MYERS SQUIBB COMPANY-BMS-2018-022184

PATIENT
  Age: 58 Year
  Sex: Female

DRUGS (1)
  1. ORENCIA [Suspect]
     Active Substance: ABATACEPT
     Indication: RHEUMATOID ARTHRITIS
     Dosage: 125 MILLIGRAM, Q4WK
     Route: 058
     Dates: start: 201710

REACTIONS (8)
  - Malaise [Unknown]
  - Staphylococcus test [Unknown]
  - Product dose omission [Unknown]
  - Neoplasm [Unknown]
  - Off label use [Unknown]
  - Condition aggravated [Unknown]
  - Herpes zoster [Unknown]
  - Pneumonia [Not Recovered/Not Resolved]

NARRATIVE: CASE EVENT DATE: 20190103
